FAERS Safety Report 8939857 (Version 3)
Quarter: 2013Q3

REPORT INFORMATION
  Report Type: Spontaneous
  Country: US (occurrence: US)
  Receive Date: 20121203
  Receipt Date: 20130826
  Transmission Date: 20140515
  Serious: Yes (Disabling, Other)
  Sender: FDA-Public Use
  Company Number: US-PFIZER INC-2012302528

PATIENT
  Age: 45 Year
  Sex: Female
  Weight: 56.69 kg

DRUGS (9)
  1. LYRICA [Suspect]
     Indication: NEUROPATHY PERIPHERAL
     Dosage: 100 MG, 3X/DAY
     Dates: start: 2005, end: 20130822
  2. LYRICA [Suspect]
     Indication: PAIN
  3. LYRICA [Suspect]
     Indication: NEURALGIA
  4. OXYCODONE HYDROCHLORIDE W/PARACETAMOL [Suspect]
     Indication: PAIN
     Dosage: 10/325 MG, 4X/DAY
  5. OXYCODONE HYDROCHLORIDE W/PARACETAMOL [Suspect]
     Indication: PAIN
  6. SYNTHROID [Concomitant]
     Indication: THYROID DISORDER
     Dosage: 150 UG/DAY
  7. FLEXERIL [Concomitant]
     Indication: PAIN
     Dosage: 10 MG, 3X/DAY
  8. FLEXERIL [Concomitant]
     Indication: MUSCLE SPASMS
  9. VENTOLIN [Concomitant]
     Indication: ASTHMA
     Dosage: UNK

REACTIONS (7)
  - Myocardial infarction [Unknown]
  - Pain [Not Recovered/Not Resolved]
  - Drug ineffective [Unknown]
  - Vision blurred [Unknown]
  - Mood altered [Recovered/Resolved]
  - Dry mouth [Not Recovered/Not Resolved]
  - Local swelling [Unknown]
